FAERS Safety Report 9402908 (Version 1)
Quarter: 2013Q3

REPORT INFORMATION
  Report Type: Spontaneous
  Country: US (occurrence: None)
  Receive Date: 20130715
  Receipt Date: 20130715
  Transmission Date: 20140515
  Serious: No
  Sender: FDA-Public Use
  Company Number: None

PATIENT
  Age: 46 Year
  Sex: Female
  Weight: 54.5 kg

DRUGS (2)
  1. BUPROPRION XL [Suspect]
     Indication: MAJOR DEPRESSION
     Route: 048
     Dates: start: 201206, end: 201306
  2. BUPROPRION XL [Suspect]
     Indication: GENERALISED ANXIETY DISORDER
     Route: 048
     Dates: start: 201206, end: 201306

REACTIONS (9)
  - Product substitution issue [None]
  - Major depression [None]
  - Nausea [None]
  - Vomiting [None]
  - Dizziness [None]
  - Headache [None]
  - Decreased appetite [None]
  - Agitation [None]
  - Insomnia [None]
